FAERS Safety Report 22520316 (Version 5)
Quarter: 2024Q1

REPORT INFORMATION
  Report Type: Spontaneous
  Country: US (occurrence: US)
  Receive Date: 20230605
  Receipt Date: 20240131
  Transmission Date: 20240410
  Serious: Yes (Other)
  Sender: FDA-Public Use
  Company Number: US-PFIZER INC-202300208107

PATIENT
  Age: 80 Year
  Sex: Female
  Weight: 58.957 kg

DRUGS (4)
  1. IBRANCE [Suspect]
     Active Substance: PALBOCICLIB
     Indication: Breast cancer stage IV
     Dosage: 125 MG, ONCE A DAY FOR 21 DAYS
     Dates: start: 20221013
  2. IBRANCE [Suspect]
     Active Substance: PALBOCICLIB
     Dosage: UNK
     Dates: start: 20230911
  3. IBRANCE [Suspect]
     Active Substance: PALBOCICLIB
     Dosage: 100 MG
  4. EXEMESTANE [Concomitant]
     Active Substance: EXEMESTANE
     Dosage: 25 MG (AFTER FINISHED EATING)
     Dates: start: 20221101

REACTIONS (2)
  - Hypoacusis [Unknown]
  - Haemoglobin decreased [Unknown]
